FAERS Safety Report 15127031 (Version 1)
Quarter: 2018Q3

REPORT INFORMATION
  Report Type: Spontaneous
  Country: US (occurrence: US)
  Receive Date: 20180710
  Receipt Date: 20180710
  Transmission Date: 20181010
  Serious: No
  Sender: FDA-Public Use
  Company Number: US-LYNE LABORATORIES INC.-2051671

PATIENT
  Age: 71 Year
  Sex: Male
  Weight: 90.91 kg

DRUGS (9)
  1. UNSPECIFIED ANTIBIOTIC [Concomitant]
     Active Substance: UNSPECIFIED INGREDIENT
  2. LOSARTAN. [Concomitant]
     Active Substance: LOSARTAN
  3. WARFARIN SODIUM. [Concomitant]
     Active Substance: WARFARIN SODIUM
  4. TRIAMCINOLONE ACETONIDE. [Suspect]
     Active Substance: TRIAMCINOLONE ACETONIDE
     Indication: APHTHOUS ULCER
     Route: 061
     Dates: start: 20170627
  5. CENTRUM ONE?A?DAY [Concomitant]
  6. MONTELUKAST [Concomitant]
     Active Substance: MONTELUKAST SODIUM
  7. UNSPECIFIED VITAMINS [Concomitant]
     Active Substance: VITAMINS
  8. SIMVASTATIN. [Concomitant]
     Active Substance: SIMVASTATIN
  9. UNSPECIFIED STEROID [Concomitant]
     Active Substance: UNSPECIFIED INGREDIENT

REACTIONS (1)
  - Drug ineffective [Recovering/Resolving]
